FAERS Safety Report 8533619-7 (Version None)
Quarter: 2012Q3

REPORT INFORMATION
  Report Type: 
  Country: None (occurrence: None)
  Receive Date: 20120717
  Receipt Date: 20120717
  Transmission Date: 20120928
  Serious: Yes (Life-Threatening, Hospitalization)
  Sender: FDA-Public Use
  Company Number: None

PATIENT
  Sex: Female
  Weight: 50.1 kg

DRUGS (8)
  1. SULFASALAZINE [Suspect]
     Indication: RHEUMATOID ARTHRITIS
     Dosage: 500 MG BID PO  3-4 WEEKS
     Route: 048
  2. METHOTREXATE [Concomitant]
  3. FERROUS SULFATE TAB [Concomitant]
  4. FLUCONAZOLE [Concomitant]
  5. PREDNISONE [Concomitant]
  6. HYDROXYCHLOROQUINE SULFATE [Concomitant]
  7. FOLIC ACID [Concomitant]
  8. MELOXICAM [Concomitant]

REACTIONS (1)
  - STEVENS-JOHNSON SYNDROME [None]
